FAERS Safety Report 11192956 (Version 1)
Quarter: 2015Q2

REPORT INFORMATION
  Report Type: Spontaneous
  Country: FR (occurrence: FR)
  Receive Date: 20150616
  Receipt Date: 20150616
  Transmission Date: 20150821
  Serious: Yes (Hospitalization)
  Sender: FDA-Public Use
  Company Number: FR-BRISTOL-MYERS SQUIBB COMPANY-BMS-2015-038551

PATIENT
  Age: 85 Year
  Sex: Female

DRUGS (3)
  1. YERVOY [Suspect]
     Active Substance: IPILIMUMAB
     Indication: MALIGNANT MELANOMA
     Dosage: 200 MG, UNK
     Route: 042
     Dates: start: 20150128
  2. YERVOY [Suspect]
     Active Substance: IPILIMUMAB
     Dosage: 250 MG, UNK
     Route: 042
     Dates: start: 20150218
  3. YERVOY [Suspect]
     Active Substance: IPILIMUMAB
     Dosage: 200 MG, UNK
     Route: 042
     Dates: start: 20150311

REACTIONS (3)
  - Diarrhoea [Recovering/Resolving]
  - General physical health deterioration [Unknown]
  - Orthostatic hypotension [Unknown]

NARRATIVE: CASE EVENT DATE: 20150329
